FAERS Safety Report 9767910 (Version 1)
Quarter: 2013Q4

REPORT INFORMATION
  Report Type: Spontaneous
  Country: TR (occurrence: TR)
  Receive Date: 20131217
  Receipt Date: 20131217
  Transmission Date: 20140711
  Serious: Yes (Hospitalization)
  Sender: FDA-Public Use
  Company Number: PHHY2013TR146432

PATIENT
  Age: 14 Year
  Sex: Male

DRUGS (1)
  1. TEGRETOL [Suspect]
     Dosage: UNK UKN, BID
     Route: 048
     Dates: start: 20130711, end: 20130809

REACTIONS (8)
  - Eye swelling [Recovered/Resolved]
  - Hyperaesthesia [Recovered/Resolved]
  - Lip injury [Recovered/Resolved]
  - Eyelid margin crusting [Recovered/Resolved]
  - Ocular hyperaemia [Recovered/Resolved]
  - Lip swelling [Recovered/Resolved]
  - Speech disorder [Recovered/Resolved]
  - Rash [Recovered/Resolved]
